FAERS Safety Report 4386920-5 (Version None)
Quarter: 2004Q2

REPORT INFORMATION
  Report Type: 
  Country: None (occurrence: None)
  Receive Date: 20040629
  Receipt Date: 20040629
  Transmission Date: 20050107
  Serious: No
  Sender: FDA-Public Use
  Company Number: None

PATIENT
  Age: 13 Year
  Sex: Female
  Weight: 62.7 kg

DRUGS (2)
  1. SINGULAIR [Suspect]
     Indication: ASTHMA
     Dosage: 10 MG PO QD
     Route: 048
     Dates: start: 20021101, end: 20040430
  2. EFFEXOR [Concomitant]

REACTIONS (3)
  - CARDIAC DISORDER [None]
  - PANIC DISORDER [None]
  - VOMITING [None]
